FAERS Safety Report 21043763 (Version 1)
Quarter: 2022Q3

REPORT INFORMATION
  Report Type: Spontaneous
  Country: US (occurrence: None)
  Receive Date: 20220701
  Receipt Date: 20220701
  Transmission Date: 20221027
  Serious: Yes (Other)
  Sender: FDA-Public Use
  Company Number: None

PATIENT
  Age: 58 Year
  Sex: Female
  Weight: 81 kg

DRUGS (9)
  1. SUTAB [Suspect]
     Active Substance: MAGNESIUM SULFATE\POTASSIUM CHLORIDE\SODIUM SULFATE
     Indication: Colonoscopy
     Dosage: OTHER QUANTITY : 12 TABLET(S);?OTHER FREQUENCY : TWO TIMES;?
     Route: 048
     Dates: start: 20220314, end: 20220315
  2. insulin tresiba [Concomitant]
  3. NOVOLOG [Concomitant]
  4. super enzymes [Concomitant]
  5. VITAMIN B12 [Concomitant]
     Active Substance: CYANOCOBALAMIN
  6. ZINC [Concomitant]
     Active Substance: ZINC
  7. TAURINE [Concomitant]
  8. vitamin D 5000 daily GTF one daily [Concomitant]
  9. ZOLOFT [Concomitant]
     Active Substance: SERTRALINE HYDROCHLORIDE

REACTIONS (8)
  - Blood glucose decreased [None]
  - Abdominal distension [None]
  - Dizziness [None]
  - Dehydration [None]
  - Eructation [None]
  - Palpitations [None]
  - Diarrhoea [None]
  - Blood potassium decreased [None]

NARRATIVE: CASE EVENT DATE: 20220315
